FAERS Safety Report 18332482 (Version 1)
Quarter: 2020Q4

REPORT INFORMATION
  Report Type: Spontaneous
  Country: PL (occurrence: PL)
  Receive Date: 20201001
  Receipt Date: 20201001
  Transmission Date: 20210113
  Serious: Yes (Hospitalization, Other)
  Sender: FDA-Public Use
  Company Number: PL-ALKEM LABORATORIES LIMITED-PL-ALKEM-2020-06242

PATIENT
  Age: 46 Year
  Sex: Male

DRUGS (4)
  1. CEFUROXIME AXETIL. [Suspect]
     Active Substance: CEFUROXIME AXETIL
     Indication: ANTIBIOTIC PROPHYLAXIS
     Dosage: 1 MILLIGRAM
     Route: 031
  2. PROXYMETACAINE [Concomitant]
     Active Substance: PROPARACAINE HYDROCHLORIDE
     Indication: LOCAL ANAESTHESIA
     Dosage: UNK
     Route: 061
  3. TROPICAMIDE 1 % [Concomitant]
     Indication: MYDRIASIS
     Dosage: UNK
     Route: 047
  4. NEOSYNEPHRINE 10 % [Concomitant]
     Indication: MYDRIASIS
     Dosage: UNK
     Route: 047

REACTIONS (5)
  - Macular detachment [Recovered/Resolved]
  - Macular oedema [Recovered/Resolved]
  - Product preparation issue [Unknown]
  - Visual field defect [Recovered/Resolved]
  - Retinal toxicity [Recovered/Resolved]
